FAERS Safety Report 24313055 (Version 1)
Quarter: 2024Q3

REPORT INFORMATION
  Report Type: Spontaneous
  Country: US (occurrence: US)
  Receive Date: 20240912
  Receipt Date: 20240912
  Transmission Date: 20241017
  Serious: Yes (Other)
  Sender: INCYTE
  Company Number: US-INCYTE CORPORATION-2024IN009512

PATIENT

DRUGS (1)
  1. JAKAFI [Suspect]
     Active Substance: RUXOLITINIB
     Indication: Polycythaemia vera
     Dosage: 15 MILLIGRAM, BID
     Route: 048

REACTIONS (5)
  - Neuropathy peripheral [Unknown]
  - Thrombosis [Unknown]
  - Brain fog [Unknown]
  - Platelet count increased [Unknown]
  - Fracture [Unknown]

NARRATIVE: CASE EVENT DATE: 20240701
